FAERS Safety Report 6686033-3 (Version None)
Quarter: 2010Q2

REPORT INFORMATION
  Report Type: 
  Country: None (occurrence: None)
  Receive Date: 20100415
  Receipt Date: 20100415
  Transmission Date: 20101027
  Serious: No
  Sender: FDA-Public Use
  Company Number: None

PATIENT
  Sex: Male
  Weight: 3.14 kg

DRUGS (2)
  1. GENTAK [Suspect]
     Indication: OPHTHALMIA NEONATORUM
     Dosage: 1 ONCE OPHTHALMIC, ONE DOSE
     Route: 047
     Dates: start: 20091222, end: 20091222
  2. GENTAK [Suspect]
     Indication: PROPHYLAXIS
     Dosage: 1 ONCE OPHTHALMIC, ONE DOSE
     Route: 047
     Dates: start: 20091222, end: 20091222

REACTIONS (1)
  - APPLICATION SITE ERYTHEMA [None]
